FAERS Safety Report 23456933 (Version 1)
Quarter: 2024Q1

REPORT INFORMATION
  Report Type: Spontaneous
  Country: US (occurrence: None)
  Receive Date: 20240129
  Receipt Date: 20240129
  Transmission Date: 20240410
  Serious: Yes (Hospitalization)
  Sender: FDA-Public Use
  Company Number: None

PATIENT
  Age: 34 Year
  Sex: Female

DRUGS (3)
  1. TADALAFIL [Suspect]
     Active Substance: TADALAFIL
     Indication: Pulmonary arterial hypertension
     Dosage: FREQUENCY : DAILY;?
     Route: 048
     Dates: start: 202310
  2. OPSUMIT [Concomitant]
  3. REMODULIN VIDV [Concomitant]

REACTIONS (3)
  - Rash [None]
  - Cough [None]
  - Troponin increased [None]

NARRATIVE: CASE EVENT DATE: 20240126
